FAERS Safety Report 8799028 (Version 1)
Quarter: 2012Q4

REPORT INFORMATION
  Report Type: Spontaneous
  Country: US (occurrence: None)
  Receive Date: 20120918
  Receipt Date: 20120918
  Transmission Date: 20130627
  Serious: No
  Sender: FDA-Public Use
  Company Number: None

PATIENT
  Age: 16 Year
  Sex: Female
  Weight: 54.1 kg

DRUGS (1)
  1. LEVOCETIRIZINE [Suspect]
     Indication: ALLERGIC RHINITIS
     Dosage: 5 mg daily by mouth
     Route: 048
     Dates: start: 20110527

REACTIONS (2)
  - Crohn^s disease [None]
  - Product substitution issue [None]
